FAERS Safety Report 25239885 (Version 1)
Quarter: 2025Q2

REPORT INFORMATION
  Report Type: Spontaneous
  Country: GB (occurrence: GB)
  Receive Date: 20250425
  Receipt Date: 20250425
  Transmission Date: 20250716
  Serious: Yes (Other)
  Sender: MYLAN
  Company Number: GB-MHRA-TPP7136403C3609086YC1744902965864

PATIENT
  Age: 67 Year
  Sex: Female
  Weight: 125 kg

DRUGS (76)
  1. DOXYCYCLINE [Suspect]
     Active Substance: DOXYCYCLINE
     Indication: Product used for unknown indication
     Dosage: 100 MILLIGRAM, QD (TWO NOW THEN ONE DAILY FOR A FURTHER 6 DAYS (7 DAYS TOTAL))
     Dates: start: 20250415
  2. DOXYCYCLINE [Suspect]
     Active Substance: DOXYCYCLINE
     Dosage: 100 MILLIGRAM, QD (TWO NOW THEN ONE DAILY FOR A FURTHER 6 DAYS (7 DAYS TOTAL))
     Route: 065
     Dates: start: 20250415
  3. DOXYCYCLINE [Suspect]
     Active Substance: DOXYCYCLINE
     Dosage: 100 MILLIGRAM, QD (TWO NOW THEN ONE DAILY FOR A FURTHER 6 DAYS (7 DAYS TOTAL))
     Route: 065
     Dates: start: 20250415
  4. DOXYCYCLINE [Suspect]
     Active Substance: DOXYCYCLINE
     Dosage: 100 MILLIGRAM, QD (TWO NOW THEN ONE DAILY FOR A FURTHER 6 DAYS (7 DAYS TOTAL))
     Dates: start: 20250415
  5. MOMETASONE [Concomitant]
     Active Substance: MOMETASONE
     Dosage: UNK, QD (ONE SPRAY TO EACH NOSTRIL DAILY)
     Dates: start: 20250226, end: 20250326
  6. MOMETASONE [Concomitant]
     Active Substance: MOMETASONE
     Dosage: UNK, QD (ONE SPRAY TO EACH NOSTRIL DAILY)
     Route: 045
     Dates: start: 20250226, end: 20250326
  7. MOMETASONE [Concomitant]
     Active Substance: MOMETASONE
     Dosage: UNK, QD (ONE SPRAY TO EACH NOSTRIL DAILY)
     Route: 045
     Dates: start: 20250226, end: 20250326
  8. MOMETASONE [Concomitant]
     Active Substance: MOMETASONE
     Dosage: UNK, QD (ONE SPRAY TO EACH NOSTRIL DAILY)
     Dates: start: 20250226, end: 20250326
  9. PREDNISOLONE [Concomitant]
     Active Substance: PREDNISOLONE
     Dosage: 6 DOSAGE FORM, AM (TAKE SIX TABLETS (30MG) EVERY MORNING FOR 5 DAY)
     Dates: start: 20250415
  10. PREDNISOLONE [Concomitant]
     Active Substance: PREDNISOLONE
     Dosage: 6 DOSAGE FORM, AM (TAKE SIX TABLETS (30MG) EVERY MORNING FOR 5 DAY)
     Route: 065
     Dates: start: 20250415
  11. PREDNISOLONE [Concomitant]
     Active Substance: PREDNISOLONE
     Dosage: 6 DOSAGE FORM, AM (TAKE SIX TABLETS (30MG) EVERY MORNING FOR 5 DAY)
     Route: 065
     Dates: start: 20250415
  12. PREDNISOLONE [Concomitant]
     Active Substance: PREDNISOLONE
     Dosage: 6 DOSAGE FORM, AM (TAKE SIX TABLETS (30MG) EVERY MORNING FOR 5 DAY)
     Dates: start: 20250415
  13. AMOXICILLIN [Concomitant]
     Active Substance: AMOXICILLIN
     Dosage: 1 DOSAGE FORM, TID (TAKE ONE 3 TIMES/DAY)
     Dates: start: 20250417
  14. AMOXICILLIN [Concomitant]
     Active Substance: AMOXICILLIN
     Dosage: 1 DOSAGE FORM, TID (TAKE ONE 3 TIMES/DAY)
     Route: 065
     Dates: start: 20250417
  15. AMOXICILLIN [Concomitant]
     Active Substance: AMOXICILLIN
     Dosage: 1 DOSAGE FORM, TID (TAKE ONE 3 TIMES/DAY)
     Route: 065
     Dates: start: 20250417
  16. AMOXICILLIN [Concomitant]
     Active Substance: AMOXICILLIN
     Dosage: 1 DOSAGE FORM, TID (TAKE ONE 3 TIMES/DAY)
     Dates: start: 20250417
  17. CITALOPRAM [Concomitant]
     Active Substance: CITALOPRAM
     Dosage: 2 DOSAGE FORM, QD (TAKE TWO TABLETS DAILY)
     Dates: start: 20230911
  18. CITALOPRAM [Concomitant]
     Active Substance: CITALOPRAM
     Dosage: 2 DOSAGE FORM, QD (TAKE TWO TABLETS DAILY)
     Route: 065
     Dates: start: 20230911
  19. CITALOPRAM [Concomitant]
     Active Substance: CITALOPRAM
     Dosage: 2 DOSAGE FORM, QD (TAKE TWO TABLETS DAILY)
     Route: 065
     Dates: start: 20230911
  20. CITALOPRAM [Concomitant]
     Active Substance: CITALOPRAM
     Dosage: 2 DOSAGE FORM, QD (TAKE TWO TABLETS DAILY)
     Dates: start: 20230911
  21. LISINOPRIL [Concomitant]
     Active Substance: LISINOPRIL
     Dosage: 1 DOSAGE FORM, QD (TAKE ONE DAILY)
     Dates: start: 20230911
  22. LISINOPRIL [Concomitant]
     Active Substance: LISINOPRIL
     Dosage: 1 DOSAGE FORM, QD (TAKE ONE DAILY)
     Route: 065
     Dates: start: 20230911
  23. LISINOPRIL [Concomitant]
     Active Substance: LISINOPRIL
     Dosage: 1 DOSAGE FORM, QD (TAKE ONE DAILY)
     Route: 065
     Dates: start: 20230911
  24. LISINOPRIL [Concomitant]
     Active Substance: LISINOPRIL
     Dosage: 1 DOSAGE FORM, QD (TAKE ONE DAILY)
     Dates: start: 20230911
  25. OMEPRAZOLE [Concomitant]
     Active Substance: OMEPRAZOLE
     Dosage: 2 DOSAGE FORM, QD (TAKE TWO DAILY)
     Dates: start: 20230911
  26. OMEPRAZOLE [Concomitant]
     Active Substance: OMEPRAZOLE
     Dosage: 2 DOSAGE FORM, QD (TAKE TWO DAILY)
     Route: 065
     Dates: start: 20230911
  27. OMEPRAZOLE [Concomitant]
     Active Substance: OMEPRAZOLE
     Dosage: 2 DOSAGE FORM, QD (TAKE TWO DAILY)
     Route: 065
     Dates: start: 20230911
  28. OMEPRAZOLE [Concomitant]
     Active Substance: OMEPRAZOLE
     Dosage: 2 DOSAGE FORM, QD (TAKE TWO DAILY)
     Dates: start: 20230911
  29. RIVAROXABAN [Concomitant]
     Active Substance: RIVAROXABAN
     Dosage: 1 DOSAGE FORM, QD (TAKE ONE DAILY WITH FOOD)
     Dates: start: 20230911
  30. RIVAROXABAN [Concomitant]
     Active Substance: RIVAROXABAN
     Dosage: 1 DOSAGE FORM, QD (TAKE ONE DAILY WITH FOOD)
     Route: 065
     Dates: start: 20230911
  31. RIVAROXABAN [Concomitant]
     Active Substance: RIVAROXABAN
     Dosage: 1 DOSAGE FORM, QD (TAKE ONE DAILY WITH FOOD)
     Route: 065
     Dates: start: 20230911
  32. RIVAROXABAN [Concomitant]
     Active Substance: RIVAROXABAN
     Dosage: 1 DOSAGE FORM, QD (TAKE ONE DAILY WITH FOOD)
     Dates: start: 20230911
  33. CODEINE PHOSPHATE [Concomitant]
     Active Substance: CODEINE PHOSPHATE
  34. CODEINE PHOSPHATE [Concomitant]
     Active Substance: CODEINE PHOSPHATE
     Route: 065
  35. CODEINE PHOSPHATE [Concomitant]
     Active Substance: CODEINE PHOSPHATE
     Route: 065
  36. CODEINE PHOSPHATE [Concomitant]
     Active Substance: CODEINE PHOSPHATE
  37. ACETAMINOPHEN [Concomitant]
     Active Substance: ACETAMINOPHEN
     Indication: Pain
     Dosage: 2 DOSAGE FORM, QID (TAKE TWO FOUR TIMES A DAY FOR PAIN)
     Dates: start: 20230927
  38. ACETAMINOPHEN [Concomitant]
     Active Substance: ACETAMINOPHEN
     Dosage: 2 DOSAGE FORM, QID (TAKE TWO FOUR TIMES A DAY FOR PAIN)
     Route: 065
     Dates: start: 20230927
  39. ACETAMINOPHEN [Concomitant]
     Active Substance: ACETAMINOPHEN
     Dosage: 2 DOSAGE FORM, QID (TAKE TWO FOUR TIMES A DAY FOR PAIN)
     Route: 065
     Dates: start: 20230927
  40. ACETAMINOPHEN [Concomitant]
     Active Substance: ACETAMINOPHEN
     Dosage: 2 DOSAGE FORM, QID (TAKE TWO FOUR TIMES A DAY FOR PAIN)
     Dates: start: 20230927
  41. FERROUS SULFATE [Concomitant]
     Active Substance: FERROUS SULFATE
     Dosage: 1 DOSAGE FORM, BID (TAKE ONE TABLET TWICE DAILY)
     Dates: start: 20231002
  42. FERROUS SULFATE [Concomitant]
     Active Substance: FERROUS SULFATE
     Dosage: 1 DOSAGE FORM, BID (TAKE ONE TABLET TWICE DAILY)
     Route: 065
     Dates: start: 20231002
  43. FERROUS SULFATE [Concomitant]
     Active Substance: FERROUS SULFATE
     Dosage: 1 DOSAGE FORM, BID (TAKE ONE TABLET TWICE DAILY)
     Route: 065
     Dates: start: 20231002
  44. FERROUS SULFATE [Concomitant]
     Active Substance: FERROUS SULFATE
     Dosage: 1 DOSAGE FORM, BID (TAKE ONE TABLET TWICE DAILY)
     Dates: start: 20231002
  45. Duaklir genuair emra med [Concomitant]
     Dosage: 1 DOSAGE FORM, BID (INHALE 1 DOSE TWICE DAILY)
     Dates: start: 20231112
  46. Duaklir genuair emra med [Concomitant]
     Dosage: 1 DOSAGE FORM, BID (INHALE 1 DOSE TWICE DAILY)
     Route: 055
     Dates: start: 20231112
  47. Duaklir genuair emra med [Concomitant]
     Dosage: 1 DOSAGE FORM, BID (INHALE 1 DOSE TWICE DAILY)
     Route: 055
     Dates: start: 20231112
  48. Duaklir genuair emra med [Concomitant]
     Dosage: 1 DOSAGE FORM, BID (INHALE 1 DOSE TWICE DAILY)
     Dates: start: 20231112
  49. VENTOLIN [Concomitant]
     Active Substance: ALBUTEROL SULFATE
     Dosage: 1 DOSAGE FORM, QID (INHALE ONE PUFF FOUR TIMES A DAY WHEN REQUIRED )
     Dates: start: 20231112
  50. VENTOLIN [Concomitant]
     Active Substance: ALBUTEROL SULFATE
     Dosage: 1 DOSAGE FORM, QID (INHALE ONE PUFF FOUR TIMES A DAY WHEN REQUIRED )
     Route: 055
     Dates: start: 20231112
  51. VENTOLIN [Concomitant]
     Active Substance: ALBUTEROL SULFATE
     Dosage: 1 DOSAGE FORM, QID (INHALE ONE PUFF FOUR TIMES A DAY WHEN REQUIRED )
     Route: 055
     Dates: start: 20231112
  52. VENTOLIN [Concomitant]
     Active Substance: ALBUTEROL SULFATE
     Dosage: 1 DOSAGE FORM, QID (INHALE ONE PUFF FOUR TIMES A DAY WHEN REQUIRED )
     Dates: start: 20231112
  53. DIAZEPAM [Concomitant]
     Active Substance: DIAZEPAM
     Indication: Anxiety
  54. DIAZEPAM [Concomitant]
     Active Substance: DIAZEPAM
     Route: 065
  55. DIAZEPAM [Concomitant]
     Active Substance: DIAZEPAM
     Route: 065
  56. DIAZEPAM [Concomitant]
     Active Substance: DIAZEPAM
  57. SPIRIVA [Concomitant]
     Active Substance: TIOTROPIUM BROMIDE MONOHYDRATE
     Dosage: 1 DOSAGE FORM, QD (INHALE ONE PUFF ONCE A DAY)
     Dates: start: 20240610, end: 20250122
  58. SPIRIVA [Concomitant]
     Active Substance: TIOTROPIUM BROMIDE MONOHYDRATE
     Dosage: 1 DOSAGE FORM, QD (INHALE ONE PUFF ONCE A DAY)
     Route: 055
     Dates: start: 20240610, end: 20250122
  59. SPIRIVA [Concomitant]
     Active Substance: TIOTROPIUM BROMIDE MONOHYDRATE
     Dosage: 1 DOSAGE FORM, QD (INHALE ONE PUFF ONCE A DAY)
     Route: 055
     Dates: start: 20240610, end: 20250122
  60. SPIRIVA [Concomitant]
     Active Substance: TIOTROPIUM BROMIDE MONOHYDRATE
     Dosage: 1 DOSAGE FORM, QD (INHALE ONE PUFF ONCE A DAY)
     Dates: start: 20240610, end: 20250122
  61. CYANOCOBALAMIN [Concomitant]
     Active Substance: CYANOCOBALAMIN
     Dosage: 1 DOSAGE FORM, QD (ONE TABLET A DAY (THIS IS VITAMIN B12))
     Dates: start: 20240813
  62. CYANOCOBALAMIN [Concomitant]
     Active Substance: CYANOCOBALAMIN
     Dosage: 1 DOSAGE FORM, QD (ONE TABLET A DAY (THIS IS VITAMIN B12))
     Route: 065
     Dates: start: 20240813
  63. CYANOCOBALAMIN [Concomitant]
     Active Substance: CYANOCOBALAMIN
     Dosage: 1 DOSAGE FORM, QD (ONE TABLET A DAY (THIS IS VITAMIN B12))
     Route: 065
     Dates: start: 20240813
  64. CYANOCOBALAMIN [Concomitant]
     Active Substance: CYANOCOBALAMIN
     Dosage: 1 DOSAGE FORM, QD (ONE TABLET A DAY (THIS IS VITAMIN B12))
     Dates: start: 20240813
  65. CHLORPROMAZINE [Concomitant]
     Active Substance: CHLORPROMAZINE
     Dosage: 1 DOSAGE FORM, AM (ONE TABLET IN THE MORNING)
     Dates: start: 20241004
  66. CHLORPROMAZINE [Concomitant]
     Active Substance: CHLORPROMAZINE
     Dosage: 1 DOSAGE FORM, AM (ONE TABLET IN THE MORNING)
     Route: 065
     Dates: start: 20241004
  67. CHLORPROMAZINE [Concomitant]
     Active Substance: CHLORPROMAZINE
     Dosage: 1 DOSAGE FORM, AM (ONE TABLET IN THE MORNING)
     Route: 065
     Dates: start: 20241004
  68. CHLORPROMAZINE [Concomitant]
     Active Substance: CHLORPROMAZINE
     Dosage: 1 DOSAGE FORM, AM (ONE TABLET IN THE MORNING)
     Dates: start: 20241004
  69. FOLIC ACID [Concomitant]
     Active Substance: FOLIC ACID
     Dosage: 1 DOSAGE FORM, QD (TAKE ONE DAILY FOR 3 MONTHS)
     Dates: start: 20241210
  70. FOLIC ACID [Concomitant]
     Active Substance: FOLIC ACID
     Dosage: 1 DOSAGE FORM, QD (TAKE ONE DAILY FOR 3 MONTHS)
     Route: 065
     Dates: start: 20241210
  71. FOLIC ACID [Concomitant]
     Active Substance: FOLIC ACID
     Dosage: 1 DOSAGE FORM, QD (TAKE ONE DAILY FOR 3 MONTHS)
     Route: 065
     Dates: start: 20241210
  72. FOLIC ACID [Concomitant]
     Active Substance: FOLIC ACID
     Dosage: 1 DOSAGE FORM, QD (TAKE ONE DAILY FOR 3 MONTHS)
     Dates: start: 20241210
  73. ATORVASTATIN [Concomitant]
     Active Substance: ATORVASTATIN
     Dosage: 1 DOSAGE FORM, QD (TAKE ONE DAILY)
     Dates: start: 20250206
  74. ATORVASTATIN [Concomitant]
     Active Substance: ATORVASTATIN
     Dosage: 1 DOSAGE FORM, QD (TAKE ONE DAILY)
     Route: 065
     Dates: start: 20250206
  75. ATORVASTATIN [Concomitant]
     Active Substance: ATORVASTATIN
     Dosage: 1 DOSAGE FORM, QD (TAKE ONE DAILY)
     Route: 065
     Dates: start: 20250206
  76. ATORVASTATIN [Concomitant]
     Active Substance: ATORVASTATIN
     Dosage: 1 DOSAGE FORM, QD (TAKE ONE DAILY)
     Dates: start: 20250206

REACTIONS (1)
  - Illness [Recovered/Resolved]
